FAERS Safety Report 24177838 (Version 1)
Quarter: 2024Q3

REPORT INFORMATION
  Report Type: Spontaneous
  Country: IN (occurrence: IN)
  Receive Date: 20240806
  Receipt Date: 20240806
  Transmission Date: 20241016
  Serious: Yes (Hospitalization, Other)
  Sender: EPIC PHARM
  Company Number: IN-EPICPHARMA-IN-2024EPCLIT00912

PATIENT
  Age: 40 Year
  Sex: Female

DRUGS (4)
  1. RIFAMPIN [Suspect]
     Active Substance: RIFAMPIN
     Indication: Lymph node tuberculosis
     Route: 065
  2. ISONIAZID [Concomitant]
     Active Substance: ISONIAZID
     Route: 065
  3. PYRAZINAMIDE [Concomitant]
     Active Substance: PYRAZINAMIDE
     Route: 065
  4. ETHAMBUTOL [Concomitant]
     Active Substance: ETHAMBUTOL HYDROCHLORIDE
     Route: 065

REACTIONS (1)
  - Thrombocytopenic purpura [Recovered/Resolved]
